FAERS Safety Report 5753612-7 (Version None)
Quarter: 2008Q2

REPORT INFORMATION
  Report Type: 
  Country: None (occurrence: None)
  Receive Date: 20080530
  Receipt Date: 20080528
  Transmission Date: 20081010
  Serious: Yes (Hospitalization)
  Sender: FDA-Public Use
  Company Number: US-WYE-H04255408

PATIENT
  Sex: Male
  Weight: 68.55 kg

DRUGS (4)
  1. AMIODARONE HCL [Suspect]
     Indication: VENTRICULAR TACHYCARDIA
     Dosage: 400 ML WITHIN TWO HOURS
     Route: 041
     Dates: start: 20080509, end: 20080509
  2. AMIODARONE HCL [Suspect]
     Dosage: DOSE AND FREQUENCY NOT SPECIFIED
     Route: 065
     Dates: start: 20080101
  3. DIPRIVAN [Suspect]
     Indication: VENTRICULAR TACHYCARDIA
     Dosage: 80 ML WITHIN TWO HOURS
     Route: 041
     Dates: start: 20080509, end: 20080509
  4. DIPRIVAN [Suspect]
     Dosage: DOSE AND FREQUENCY NOT SPECIFIED
     Route: 065
     Dates: start: 20080101

REACTIONS (6)
  - ACCIDENTAL OVERDOSE [None]
  - BLOOD MAGNESIUM DECREASED [None]
  - BLOOD POTASSIUM DECREASED [None]
  - CONVULSION [None]
  - ELECTROCARDIOGRAM CHANGE [None]
  - INCORRECT DOSE ADMINISTERED [None]
